FAERS Safety Report 9788755 (Version 1)
Quarter: 2013Q4

REPORT INFORMATION
  Report Type: Spontaneous
  Country: DE (occurrence: DE)
  Receive Date: 20131230
  Receipt Date: 20131230
  Transmission Date: 20140711
  Serious: Yes (Other)
  Sender: FDA-Public Use
  Company Number: DE-GE HEALTHCARE MEDICAL DIAGNOSTICS-VISP-PR-1312S-0998

PATIENT
  Age: 58 Year
  Sex: Female

DRUGS (3)
  1. VISIPAQUE [Suspect]
     Indication: CHEST PAIN
     Route: 042
     Dates: start: 20131218, end: 20131218
  2. VISIPAQUE [Suspect]
     Indication: CORONARY ARTERY DISEASE
  3. VISIPAQUE [Suspect]
     Indication: DIAGNOSTIC PROCEDURE

REACTIONS (4)
  - Swelling face [Not Recovered/Not Resolved]
  - Eye swelling [Not Recovered/Not Resolved]
  - Pharyngeal oedema [Not Recovered/Not Resolved]
  - Pruritus [Not Recovered/Not Resolved]
